FAERS Safety Report 5276007-1 (Version None)
Quarter: 2007Q2

REPORT INFORMATION
  Report Type: 
  Country: None (occurrence: None)
  Receive Date: 20070326
  Receipt Date: 20070103
  Transmission Date: 20071010
  Serious: Yes (Life-Threatening, Hospitalization, Other)
  Sender: FDA-Public Use
  Company Number: BE-JNJFOC-20060603777

PATIENT
  Sex: Male
  Weight: 87 kg

DRUGS (38)
  1. TMC114 [Suspect]
     Route: 048
  2. TMC114 [Suspect]
     Indication: HIV INFECTION
     Route: 048
  3. RITONAVIR [Suspect]
     Route: 048
  4. RITONAVIR [Suspect]
     Route: 048
  5. RITONAVIR [Suspect]
     Route: 048
  6. RITONAVIR [Suspect]
     Route: 048
  7. RITONAVIR [Suspect]
     Route: 048
  8. RITONAVIR [Suspect]
     Indication: HIV INFECTION
     Route: 048
  9. FUZEON [Suspect]
     Route: 058
  10. FUZEON [Suspect]
     Indication: HIV INFECTION
     Route: 058
  11. MK0518/PLACEBO [Suspect]
     Route: 048
  12. MK0518/PLACEBO [Suspect]
     Route: 048
  13. MK0518/PLACEBO [Suspect]
     Route: 048
  14. MK0518/PLACEBO [Suspect]
     Route: 048
  15. MK0518/PLACEBO [Suspect]
     Indication: HIV INFECTION
     Route: 048
  16. VIREAD [Concomitant]
     Route: 048
  17. VIREAD [Concomitant]
     Route: 048
  18. VIREAD [Concomitant]
     Route: 048
  19. VIREAD [Concomitant]
     Route: 048
  20. VIREAD [Concomitant]
     Indication: HIV INFECTION
     Route: 048
  21. EMTRIVA [Concomitant]
     Route: 048
  22. EMTRIVA [Concomitant]
     Route: 048
  23. EMTRIVA [Concomitant]
     Route: 048
  24. EMTRIVA [Concomitant]
     Route: 048
  25. EMTRIVA [Concomitant]
     Indication: HIV INFECTION
     Route: 048
  26. CITALOPRAM [Concomitant]
     Indication: DEPRESSION
     Route: 048
  27. CYPROHEPTADINE HYDROCHLORIDE [Concomitant]
     Indication: ANOREXIA
     Route: 048
  28. FENTANYL [Concomitant]
     Indication: BACK PAIN
     Route: 048
  29. GABAPENTIN [Concomitant]
     Indication: BACK PAIN
     Route: 048
  30. MUCOPOLYSACCHARIDE POLYSULFATE [Concomitant]
     Route: 065
  31. TERAZOSIN HYDROCHLORIDE [Concomitant]
     Indication: PROSTATISM
     Route: 048
  32. TRAMADOL HCL [Concomitant]
     Indication: BACK PAIN
     Route: 048
  33. TRAZODONE HCL [Concomitant]
     Indication: DEPRESSION
     Route: 048
  34. HIRUDOID [Concomitant]
     Indication: INJECTION SITE REACTION
     Route: 061
  35. DICLOFENAC SODIUM [Concomitant]
     Route: 065
  36. UROPYRINE [Concomitant]
     Route: 065
  37. TIPRANAVIR [Concomitant]
     Route: 048
  38. TIPRANAVIR [Concomitant]
     Indication: HIV INFECTION
     Route: 048

REACTIONS (4)
  - BENIGN PROSTATIC HYPERPLASIA [None]
  - DRUG HYPERSENSITIVITY [None]
  - HYPERSENSITIVITY [None]
  - OEDEMA PERIPHERAL [None]
